FAERS Safety Report 4376608-9 (Version None)
Quarter: 2004Q2

REPORT INFORMATION
  Report Type: 
  Country: None (occurrence: None)
  Receive Date: 20040608
  Receipt Date: 20040524
  Transmission Date: 20050107
  Serious: Yes (Death)
  Sender: FDA-Public Use
  Company Number: US-JNJFOC-20040505277

PATIENT
  Age: 42 Year
  Sex: Male

DRUGS (4)
  1. DURAGESIC [Suspect]
     Indication: INTENTIONAL MISUSE
     Dosage: INTRAVENOUS
     Route: 042
  2. PAROXETINE HCL [Concomitant]
  3. COCAINE (COCAINE) [Concomitant]
  4. DIAZEPAM [Concomitant]

REACTIONS (7)
  - CARDIOMEGALY [None]
  - COMPLETED SUICIDE [None]
  - CORONARY ARTERY ATHEROSCLEROSIS [None]
  - HEPATIC STEATOSIS [None]
  - OVERDOSE [None]
  - PULMONARY CONGESTION [None]
  - PULMONARY OEDEMA [None]
